FAERS Safety Report 16278022 (Version 1)
Quarter: 2019Q2

REPORT INFORMATION
  Report Type: Spontaneous
  Country: FR (occurrence: FR)
  Receive Date: 20190506
  Receipt Date: 20190506
  Transmission Date: 20190711
  Serious: Yes (Death, Other)
  Sender: FDA-Public Use
  Company Number: FR-PFIZER INC-2019186405

PATIENT
  Age: 81 Year
  Sex: Female
  Weight: 59 kg

DRUGS (7)
  1. DIFFU K [Suspect]
     Active Substance: POTASSIUM CHLORIDE
     Dosage: 1200 MG, QD
     Route: 048
     Dates: start: 201901, end: 20190402
  2. ELIQUIS [Suspect]
     Active Substance: APIXABAN
     Indication: CEREBROVASCULAR ACCIDENT PROPHYLAXIS
     Dosage: 2 DF, QD
     Route: 048
     Dates: start: 20190119, end: 20190402
  3. CORDARONE [Suspect]
     Active Substance: AMIODARONE HYDROCHLORIDE
     Indication: ATRIAL FIBRILLATION
     Dosage: 1 DF, QD
     Route: 048
     Dates: end: 20190402
  4. IMOVANE [Suspect]
     Active Substance: ZOPICLONE
     Dosage: 1 DF, QD
     Route: 048
     Dates: end: 20190402
  5. LEVOTHYROX [Suspect]
     Active Substance: LEVOTHYROXINE
     Indication: HYPOTHYROIDISM
     Dosage: 62.5 UG, QD
     Route: 048
     Dates: end: 20190402
  6. ELIQUIS [Suspect]
     Active Substance: APIXABAN
     Indication: ATRIAL FIBRILLATION
  7. FLECAINE [Suspect]
     Active Substance: FLECAINIDE
     Indication: ATRIAL FIBRILLATION
     Dosage: 1 DF, QD
     Route: 048
     Dates: end: 20190402

REACTIONS (3)
  - Cerebellar haematoma [Fatal]
  - Coma [Fatal]
  - Cerebral haemorrhage [Fatal]

NARRATIVE: CASE EVENT DATE: 20190402
